FAERS Safety Report 4365705-X (Version None)
Quarter: 2004Q2

REPORT INFORMATION
  Report Type: 
  Country: None (occurrence: None)
  Receive Date: 20040527
  Receipt Date: 20040126
  Transmission Date: 20050107
  Serious: Yes (Other)
  Sender: FDA-Public Use
  Company Number: PHBS2004CA01445

PATIENT
  Age: 67 Year
  Sex: Male

DRUGS (2)
  1. GLEEVEC [Suspect]
     Indication: CHRONIC MYELOID LEUKAEMIA
     Dosage: 400 MG/D
     Route: 048
     Dates: start: 20021201
  2. GLEEVEC [Suspect]
     Dosage: UNK, UNK
     Route: 048

REACTIONS (1)
  - RED BLOOD CELL AGGLUTINATION [None]
